FAERS Safety Report 14915481 (Version 1)
Quarter: 2018Q2

REPORT INFORMATION
  Report Type: Spontaneous
  Country: FR (occurrence: FR)
  Receive Date: 20180518
  Receipt Date: 20180518
  Transmission Date: 20180711
  Serious: Yes (Hospitalization)
  Sender: FDA-Public Use
  Company Number: FR-MYLANLABS-2018M1032283

PATIENT
  Age: 54 Year
  Sex: Male
  Weight: 87 kg

DRUGS (3)
  1. IBUPROFEN. [Suspect]
     Active Substance: IBUPROFEN
     Indication: ODYNOPHAGIA
     Dosage: UNK
     Route: 048
  2. FERVEX                             /00372301/ [Concomitant]
     Active Substance: DICLOFENAC
     Indication: NASOPHARYNGITIS
     Dosage: UNK
     Route: 048
  3. ORACILLINE                         /00001805/ [Suspect]
     Active Substance: PENICILLIN V BENZATHINE
     Indication: ODYNOPHAGIA
     Dosage: UNK
     Route: 048

REACTIONS (1)
  - Acute generalised exanthematous pustulosis [Recovering/Resolving]

NARRATIVE: CASE EVENT DATE: 20180204
